FAERS Safety Report 8094345-4 (Version None)
Quarter: 2012Q1

REPORT INFORMATION
  Report Type: 
  Country: None (occurrence: None)
  Receive Date: 20120130
  Receipt Date: 20120123
  Transmission Date: 20120608
  Serious: No
  Sender: FDA-Public Use
  Company Number: US-PFIZER INC-2012001408

PATIENT
  Sex: Female
  Weight: 59.864 kg

DRUGS (3)
  1. GEODON [Suspect]
     Indication: BIPOLAR I DISORDER
     Dosage: 80 MG, 2X/DAY
     Route: 048
     Dates: start: 20110801
  2. GEODON [Suspect]
     Indication: POST-TRAUMATIC STRESS DISORDER
  3. GEODON [Suspect]
     Indication: BIPOLAR DISORDER

REACTIONS (2)
  - WEIGHT DECREASED [None]
  - JOINT STIFFNESS [None]
